FAERS Safety Report 10168889 (Version 1)
Quarter: 2014Q2

REPORT INFORMATION
  Report Type: Spontaneous
  Country: US (occurrence: None)
  Receive Date: 20140512
  Receipt Date: 20140512
  Transmission Date: 20141212
  Serious: Yes (Hospitalization)
  Sender: FDA-Public Use
  Company Number: None

PATIENT
  Age: 77 Year
  Sex: Male
  Weight: 81.8 kg

DRUGS (2)
  1. LISINOPRIL [Suspect]
     Indication: HYPERTENSION
     Route: 048
     Dates: start: 20140423, end: 20140425
  2. HYDROCHLOROTHIAZIDE [Suspect]
     Route: 048
     Dates: start: 20140423

REACTIONS (3)
  - Hyperkalaemia [None]
  - Bradycardia [None]
  - Renal failure acute [None]
